FAERS Safety Report 9521345 (Version 1)
Quarter: 2013Q1

REPORT INFORMATION
  Report Type: Spontaneous
  Country: US (occurrence: None)
  Receive Date: 20130305
  Receipt Date: 20130305
  Transmission Date: 20140127
  Serious: Yes (Other)
  Sender: FDA-Public Use
  Company Number: 163-21880-12072518

PATIENT
  Age: 58 Year
  Sex: Female
  Weight: 66.68 kg

DRUGS (10)
  1. REVLIMID [Suspect]
     Indication: PLASMA CELL MYELOMA
     Route: 048
     Dates: start: 20100105
  2. ALLOPURINOL (ALLOPURINOL) [Concomitant]
  3. AMITRIPTYLINE (AMITRIPTYLINE) [Concomitant]
  4. BENAZEPRIL (BENAZEPRIL) [Concomitant]
  5. CALCIUM + D (OS-CAL) [Concomitant]
  6. FAMCICLOVIR (FAMCICLOVIR) [Concomitant]
  7. LEVOTHYROXINE (LEVOTHYROXINE) [Concomitant]
  8. MAGNESIUM (MAGNESIUM) [Concomitant]
  9. NEURONTIN (GABAPENTIN) [Concomitant]
  10. TEMAZEPAM (TEMAZEPAM) [Concomitant]

REACTIONS (1)
  - Diarrhoea [None]
